FAERS Safety Report 7370038-3 (Version None)
Quarter: 2011Q1

REPORT INFORMATION
  Report Type: 
  Country: None (occurrence: None)
  Receive Date: 20110323
  Receipt Date: 20110309
  Transmission Date: 20110831
  Serious: Yes (Other)
  Sender: FDA-Public Use
  Company Number: PHHY2011GB20953

PATIENT
  Age: 36 Year
  Sex: Female

DRUGS (7)
  1. PHENYTOIN [Interacting]
     Dosage: 150 MG, UNK
  2. LACOSAMIDE [Interacting]
     Indication: CONVULSION
     Dosage: 100 MG, UNK
  3. LACOSAMIDE [Interacting]
     Dosage: 200 MG, UNK
  4. OXCARBAZEPINA [Suspect]
     Indication: EPILEPSY
     Dosage: 1350 MG, DAILY
  5. OXCARBAZEPINA [Interacting]
     Dosage: 300 MG, DAILY
  6. OXCARBAZEPINA [Interacting]
     Dosage: 1200 MG, DAILY
  7. TOPIRAMATE [Interacting]
     Indication: EPILEPSY
     Dosage: 250 MG, DAILY

REACTIONS (4)
  - NEUROTOXICITY [None]
  - BALANCE DISORDER [None]
  - DIPLOPIA [None]
  - DRUG INTERACTION [None]
